FAERS Safety Report 17120036 (Version 1)
Quarter: 2019Q4

REPORT INFORMATION
  Report Type: Spontaneous
  Country: BR (occurrence: BR)
  Receive Date: 20191206
  Receipt Date: 20191206
  Transmission Date: 20200122
  Serious: Yes (Life-Threatening, Hospitalization, Disabling, Other)
  Sender: FDA-Public Use
  Company Number: NVSC2019BR059490

PATIENT
  Age: 57 Year
  Sex: Male

DRUGS (1)
  1. IMATINIB. [Suspect]
     Active Substance: IMATINIB MESYLATE
     Indication: PRODUCT USED FOR UNKNOWN INDICATION
     Dosage: 400 MG, QD (1 TABLET)
     Route: 065
     Dates: start: 2012, end: 201312

REACTIONS (16)
  - Gait disturbance [Unknown]
  - Hypochromic anaemia [Unknown]
  - Dyspnoea [Unknown]
  - Hyperthyroidism [Unknown]
  - Peripheral sensory neuropathy [Unknown]
  - Cerebral haemorrhage [Unknown]
  - Hypertension [Unknown]
  - Weight decreased [Unknown]
  - Neurological symptom [Recovered/Resolved with Sequelae]
  - Headache [Unknown]
  - Arrhythmia [Unknown]
  - Tracheal stenosis [Unknown]
  - Nausea [Unknown]
  - Fatigue [Unknown]
  - Seizure [Unknown]
  - Ventricular enlargement [Unknown]

NARRATIVE: CASE EVENT DATE: 2015
